FAERS Safety Report 21302573 (Version 1)
Quarter: 2022Q3

REPORT INFORMATION
  Report Type: Spontaneous
  Country: DE (occurrence: DE)
  Receive Date: 20220907
  Receipt Date: 20220907
  Transmission Date: 20221026
  Serious: Yes (Other)
  Sender: FDA-Public Use
  Company Number: None

PATIENT
  Age: 54 Year
  Sex: Male
  Weight: 89 kg

DRUGS (1)
  1. ROSUVASTATIN [Suspect]
     Active Substance: ROSUVASTATIN
     Indication: Hypercholesterolaemia
     Dosage: 10 MG, QD (1 X 10 MG / TAG)
     Route: 048
     Dates: start: 20210915, end: 20220528

REACTIONS (1)
  - Muscle rupture [Recovered/Resolved with Sequelae]

NARRATIVE: CASE EVENT DATE: 20220526
